FAERS Safety Report 16877706 (Version 23)
Quarter: 2021Q3

REPORT INFORMATION
  Report Type: Other
  Country: DE (occurrence: DE)
  Receive Date: 20191002
  Receipt Date: 20210930
  Transmission Date: 20211014
  Serious: Yes (Hospitalization, Other)
  Sender: FDA-Public Use
  Company Number: DE-ROCHE-2095674

PATIENT
  Age: 59 Year
  Sex: Female

DRUGS (16)
  1. OCREVUS [Suspect]
     Active Substance: OCRELIZUMAB
     Route: 042
     Dates: start: 2021
  2. CITALOPRAM [Concomitant]
     Active Substance: CITALOPRAM HYDROBROMIDE
  3. OCREVUS [Suspect]
     Active Substance: OCRELIZUMAB
     Route: 042
     Dates: start: 20210720
  4. SIRDALUD [Concomitant]
     Active Substance: TIZANIDINE
  5. OCREVUS [Suspect]
     Active Substance: OCRELIZUMAB
     Route: 042
  6. COVID?19 VACCINE NOS. [Suspect]
     Active Substance: COVID-19 VACCINE NOS
     Indication: PRODUCT USED FOR UNKNOWN INDICATION
     Route: 065
     Dates: start: 20210428
  7. FAMPYRA [Concomitant]
     Active Substance: DALFAMPRIDINE
     Dosage: 1?0?1
  8. L?THYROXIN [Concomitant]
     Active Substance: LEVOTHYROXINE SODIUM
  9. OCREVUS [Suspect]
     Active Substance: OCRELIZUMAB
     Indication: PRIMARY PROGRESSIVE MULTIPLE SCLEROSIS
     Route: 042
     Dates: start: 20180314
  10. OCREVUS [Suspect]
     Active Substance: OCRELIZUMAB
     Route: 042
     Dates: start: 20210910
  11. METHYLPREDNISOLON [Concomitant]
     Active Substance: METHYLPREDNISOLONE
     Indication: PREMEDICATION
  12. SIRDALUD [Concomitant]
     Active Substance: TIZANIDINE
  13. OCREVUS [Suspect]
     Active Substance: OCRELIZUMAB
     Dosage: 4TH MAINTENANCE DOSE
     Route: 042
     Dates: start: 20200508
  14. OCREVUS [Suspect]
     Active Substance: OCRELIZUMAB
     Dosage: NEXT INFUSION WAS RECEIVED ON 29/JUL/2021
     Route: 042
     Dates: start: 20210129
  15. BACLOFEN. [Suspect]
     Active Substance: BACLOFEN
     Indication: MUSCLE SPASTICITY
     Route: 065
     Dates: start: 201904, end: 2019
  16. PARACETAMOL [Concomitant]
     Active Substance: ACETAMINOPHEN
     Indication: PREMEDICATION

REACTIONS (37)
  - Spinal disorder [Unknown]
  - Ligament injury [Not Recovered/Not Resolved]
  - Anxiety [Recovering/Resolving]
  - Asthenia [Not Recovered/Not Resolved]
  - Fall [Unknown]
  - Bone cyst [Unknown]
  - Muscle spasticity [Not Recovered/Not Resolved]
  - Nasopharyngitis [Recovering/Resolving]
  - Rhinorrhoea [Recovered/Resolved]
  - Peroneal nerve palsy [Not Recovered/Not Resolved]
  - Gait disturbance [Not Recovered/Not Resolved]
  - Spondylolisthesis [Not Recovered/Not Resolved]
  - Tooth infection [Recovered/Resolved]
  - Fatigue [Recovering/Resolving]
  - Cervical vertebral fracture [Recovered/Resolved]
  - Dental implantation [Recovered/Resolved]
  - Balance disorder [Not Recovered/Not Resolved]
  - Urticaria [Recovered/Resolved]
  - Panic attack [Recovering/Resolving]
  - Trigeminal neuralgia [Recovered/Resolved]
  - Pain in extremity [Recovered/Resolved]
  - Muscle spasticity [Not Recovered/Not Resolved]
  - Blood blister [Recovered/Resolved]
  - Pollakiuria [Not Recovered/Not Resolved]
  - Abdominal pain upper [Recovered/Resolved]
  - Intervertebral disc protrusion [Not Recovered/Not Resolved]
  - Feeling cold [Not Recovered/Not Resolved]
  - Depression [Recovering/Resolving]
  - Haemorrhage [Recovered/Resolved]
  - Injection site haematoma [Recovered/Resolved]
  - Nausea [Recovered/Resolved]
  - Hypoaesthesia [Not Recovered/Not Resolved]
  - Pain [Recovered/Resolved]
  - Fatigue [Recovered/Resolved]
  - Sleep disorder [Recovering/Resolving]
  - Headache [Not Recovered/Not Resolved]
  - Gastrointestinal infection [Not Recovered/Not Resolved]

NARRATIVE: CASE EVENT DATE: 20180315
